FAERS Safety Report 5148760-9 (Version None)
Quarter: 2006Q4

REPORT INFORMATION
  Report Type: 
  Country: None (occurrence: None)
  Receive Date: 20061107
  Receipt Date: 20061023
  Transmission Date: 20070319
  Serious: Yes (Other)
  Sender: FDA-Public Use
  Company Number: PHBS2006US16515

PATIENT
  Age: 44 Year
  Sex: Male

DRUGS (12)
  1. VALSARTAN [Suspect]
     Indication: HYPERTENSION
  2. TEMAZEPAM [Suspect]
     Indication: DEPRESSION
  3. INTERFERON ALFA (INTERFERON ALFA) [Suspect]
     Indication: HEPATITIS C
  4. CLONAZEPAM [Concomitant]
  5. HYDROXYZINE [Concomitant]
  6. RISPERIDONE [Concomitant]
  7. TRIHEXYPHENIDYL HCL [Concomitant]
  8. INSULIN (INSULIN) [Concomitant]
  9. METFORMIN HCL [Concomitant]
  10. ROSIGLITAZONE [Concomitant]
  11. GLIMEPIRIDE [Concomitant]
  12. FENOFIBRATE [Concomitant]

REACTIONS (5)
  - EYE PRURITUS [None]
  - RETINAL EXUDATES [None]
  - RETINOPATHY [None]
  - SEASONAL ALLERGY [None]
  - VISUAL DISTURBANCE [None]
